FAERS Safety Report 7631762-8 (Version None)
Quarter: 2011Q3

REPORT INFORMATION
  Report Type: 
  Country: None (occurrence: None)
  Receive Date: 20110725
  Receipt Date: 20110517
  Transmission Date: 20111222
  Serious: No
  Sender: FDA-Public Use
  Company Number: US-BRISTOL-MYERS SQUIBB COMPANY-15597396

PATIENT
  Age: 81 Year
  Sex: Male
  Weight: 84 kg

DRUGS (2)
  1. AMBIEN [Concomitant]
  2. COUMADIN [Suspect]
     Dosage: 1MG TABS
     Dates: start: 19850301

REACTIONS (1)
  - MIGRAINE [None]
